APPROVED DRUG PRODUCT: FAMOTIDINE
Active Ingredient: FAMOTIDINE
Strength: 20MG
Dosage Form/Route: TABLET;ORAL
Application: A215689 | Product #001 | TE Code: AB
Applicant: ASCENT PHARMACEUTICALS INC
Approved: Oct 15, 2021 | RLD: No | RS: No | Type: RX